FAERS Safety Report 8831144 (Version 1)
Quarter: 2012Q4

REPORT INFORMATION
  Report Type: 
  Country: DE (occurrence: DE)
  Receive Date: 20121008
  Receipt Date: 20121008
  Transmission Date: 20130627
  Serious: Yes (Other)
  Sender: FDA-Public Use
  Company Number: DE-GILEAD-2012-0062166

PATIENT
  Sex: Female

DRUGS (1)
  1. HEPSERA [Suspect]
     Indication: HEPATITIS B
     Dosage: UNK
     Dates: start: 2005

REACTIONS (5)
  - Oedema peripheral [Unknown]
  - Foot fracture [Unknown]
  - Osteonecrosis [Unknown]
  - Blood creatinine increased [Unknown]
  - Renal tubular disorder [Unknown]
